FAERS Safety Report 18371835 (Version 1)
Quarter: 2020Q4

REPORT INFORMATION
  Report Type: Spontaneous
  Country: DK (occurrence: DK)
  Receive Date: 20201012
  Receipt Date: 20201012
  Transmission Date: 20210114
  Serious: Yes (Other)
  Sender: FDA-Public Use
  Company Number: DK-JNJFOC-20200953164

PATIENT
  Age: 20 Year
  Sex: Female
  Weight: 58 kg

DRUGS (3)
  1. CONCERTA [Suspect]
     Active Substance: METHYLPHENIDATE HYDROCHLORIDE
     Indication: ATTENTION DEFICIT HYPERACTIVITY DISORDER
     Dosage: STRENGTH: 10 MG.DOSAGE: 1-2 TABLETS DAILY.
     Route: 048
     Dates: start: 20200825, end: 20200831
  2. ELVANSE [Suspect]
     Active Substance: LISDEXAMFETAMINE DIMESYLATE
     Indication: ATTENTION DEFICIT HYPERACTIVITY DISORDER
     Dosage: STRENGTH: 30 MG.
     Route: 048
     Dates: start: 20200831, end: 20200909
  3. ELVANSE [Suspect]
     Active Substance: LISDEXAMFETAMINE DIMESYLATE
     Indication: ATTENTION DEFICIT HYPERACTIVITY DISORDER
     Dosage: STRENGTH: 50 MG.
     Route: 048
     Dates: start: 202009

REACTIONS (5)
  - Sleep disorder [Recovering/Resolving]
  - Stevens-Johnson syndrome [Not Recovered/Not Resolved]
  - Social avoidant behaviour [Not Recovered/Not Resolved]
  - Decreased appetite [Not Recovered/Not Resolved]
  - Skin exfoliation [Recovering/Resolving]

NARRATIVE: CASE EVENT DATE: 20200826
